FAERS Safety Report 6668199-4 (Version None)
Quarter: 2010Q2

REPORT INFORMATION
  Report Type: 
  Country: None (occurrence: None)
  Receive Date: 20100405
  Receipt Date: 20100405
  Transmission Date: 20101027
  Serious: Yes (Hospitalization)
  Sender: FDA-Public Use
  Company Number: None

PATIENT
  Age: 65 Year
  Sex: Male
  Weight: 114.8 kg

DRUGS (3)
  1. SPIRONOLACTONE [Suspect]
     Indication: CARDIAC FAILURE CONGESTIVE
     Dosage: 100 MG EVERY DAY PO
     Route: 048
     Dates: start: 20090324, end: 20100318
  2. VALSARTAN [Suspect]
     Indication: CARDIAC FAILURE CONGESTIVE
     Dosage: 160 MG EVERY DAY PO
     Route: 048
     Dates: start: 20100217, end: 20100325
  3. VALSARTAN [Suspect]
     Indication: DIABETES MELLITUS
     Dosage: 160 MG EVERY DAY PO
     Route: 048
     Dates: start: 20100217, end: 20100325

REACTIONS (3)
  - BRADYCARDIA [None]
  - BUNDLE BRANCH BLOCK RIGHT [None]
  - HYPERKALAEMIA [None]
